FAERS Safety Report 4373993-9 (Version None)
Quarter: 2004Q2

REPORT INFORMATION
  Report Type: 
  Country: None (occurrence: None)
  Receive Date: 20040601
  Receipt Date: 20040202
  Transmission Date: 20050107
  Serious: No
  Sender: FDA-Public Use
  Company Number: MPS1-10162

PATIENT
  Age: 18 Year
  Sex: Male

DRUGS (3)
  1. ALDURAZYME [Suspect]
     Indication: MUCOPOLYSACCHARIDOSIS IH/S
     Dates: start: 20031219
  2. TYLENOL [Concomitant]
  3. BENADRYL [Concomitant]

REACTIONS (1)
  - URTICARIA [None]
